FAERS Safety Report 9852486 (Version 3)
Quarter: 2014Q1

REPORT INFORMATION
  Report Type: Report from Study
  Country: US (occurrence: US)
  Receive Date: 20140129
  Receipt Date: 20140328
  Transmission Date: 20141002
  Serious: Yes (Hospitalization)
  Sender: FDA-Public Use
  Company Number: US-BRISTOL-MYERS SQUIBB COMPANY-20061776

PATIENT
  Age: 73 Year
  Sex: Female
  Weight: 56 kg

DRUGS (11)
  1. IPILIMUMAB [Suspect]
     Indication: METASTATIC MALIGNANT MELANOMA
     Route: 042
     Dates: start: 20131104
  2. AVASTIN [Concomitant]
     Dates: start: 2013
  3. AMLODIPINE [Concomitant]
     Dates: start: 20130711
  4. COUMADIN [Concomitant]
     Dates: start: 20130812
  5. DICLOFENAC [Concomitant]
     Dates: start: 20131125
  6. IMODIUM [Concomitant]
     Dates: start: 20131201
  7. NORMAL SALINE [Concomitant]
  8. ZOFRAN [Concomitant]
  9. PROTONIX [Concomitant]
  10. INSULIN [Concomitant]
  11. HYDROMORPHONE HCL [Concomitant]

REACTIONS (1)
  - Hyponatraemia [Recovered/Resolved]
